FAERS Safety Report 17638501 (Version 1)
Quarter: 2020Q2

REPORT INFORMATION
  Report Type: Spontaneous
  Country: US (occurrence: US)
  Receive Date: 20200407
  Receipt Date: 20200407
  Transmission Date: 20200713
  Serious: Yes (Hospitalization)
  Sender: FDA-Public Use
  Company Number: None

PATIENT
  Age: 57 Week
  Sex: Male

DRUGS (2)
  1. ESCITALOPRAM 10MG [Concomitant]
     Active Substance: ESCITALOPRAM OXALATE
     Dates: start: 20200331
  2. TRAZODONE [Suspect]
     Active Substance: TRAZODONE HYDROCHLORIDE
     Indication: MAJOR DEPRESSION
     Route: 048
     Dates: start: 20200331, end: 20200401

REACTIONS (5)
  - Head injury [None]
  - Incontinence [None]
  - Respiratory disorder [None]
  - Fall [None]
  - Apnoea [None]

NARRATIVE: CASE EVENT DATE: 20200401
